FAERS Safety Report 5976234-1 (Version None)
Quarter: 2008Q4

REPORT INFORMATION
  Report Type: 
  Country: None (occurrence: None)
  Receive Date: 20081202
  Receipt Date: 20081127
  Transmission Date: 20090506
  Serious: Yes (Death, Hospitalization)
  Sender: FDA-Public Use
  Company Number: CA-ABBOTT-08P-028-0485575-00

PATIENT
  Sex: Male

DRUGS (1)
  1. HUMIRA [Suspect]
     Indication: CROHN'S DISEASE
     Route: 058
     Dates: end: 20080929

REACTIONS (8)
  - ABDOMINAL PAIN [None]
  - BLOOD PRESSURE DECREASED [None]
  - CATHETER RELATED COMPLICATION [None]
  - INFECTION [None]
  - INTESTINAL PERFORATION [None]
  - VASCULAR PROCEDURE COMPLICATION [None]
  - WOUND INFECTION [None]
  - WOUND SECRETION [None]
